FAERS Safety Report 25978478 (Version 1)
Quarter: 2025Q4

REPORT INFORMATION
  Report Type: Spontaneous
  Country: US (occurrence: US)
  Receive Date: 20251030
  Receipt Date: 20251030
  Transmission Date: 20260118
  Serious: No
  Sender: BIOGEN
  Company Number: US-BIOGEN-2088188

PATIENT
  Age: 43 Year
  Sex: Female

DRUGS (7)
  1. TECFIDERA [Suspect]
     Active Substance: DIMETHYL FUMARATE
     Indication: Multiple sclerosis
  2. CHOLECALCIFEROL [Concomitant]
     Active Substance: CHOLECALCIFEROL
     Indication: Product used for unknown indication
  3. CYANOCOBALAMIN [Concomitant]
     Active Substance: CYANOCOBALAMIN
  4. CYANOCOBALAMIN [Concomitant]
     Active Substance: CYANOCOBALAMIN
  5. DICLOFENAC [Concomitant]
     Active Substance: DICLOFENAC
     Indication: Product used for unknown indication
  6. ANTIVERT [Concomitant]
     Active Substance: MECLIZINE HYDROCHLORIDE
  7. ROBAXIN [Concomitant]
     Active Substance: METHOCARBAMOL
     Indication: Product used for unknown indication
     Dosage: 250-500MG

REACTIONS (1)
  - Multiple sclerosis [Unknown]
